FAERS Safety Report 5419734-5 (Version None)
Quarter: 2007Q3

REPORT INFORMATION
  Report Type: 
  Country: None (occurrence: None)
  Receive Date: 20070718
  Receipt Date: 20070315
  Transmission Date: 20080115
  Serious: Yes (Other)
  Sender: FDA-Public Use
  Company Number: 2006108165

PATIENT
  Age: 14 Year
  Sex: Female

DRUGS (3)
  1. CELEBREX [Suspect]
     Dosage: ORAL
     Route: 048
     Dates: start: 20020101
  2. BEXTRA [Suspect]
     Dosage: 10 MG (10 MG, 1 IN 1 D)
     Dates: start: 20001001
  3. VIOXX [Suspect]
     Dates: start: 20030101

REACTIONS (3)
  - CHEST PAIN [None]
  - DYSPNOEA [None]
  - PALPITATIONS [None]
